FAERS Safety Report 13884433 (Version 1)
Quarter: 2017Q3

REPORT INFORMATION
  Report Type: Spontaneous
  Country: US (occurrence: US)
  Receive Date: 20170821
  Receipt Date: 20170821
  Transmission Date: 20171127
  Serious: No
  Sender: FDA-Public Use
  Company Number: US-TEVA-784209ACC

PATIENT
  Sex: Male

DRUGS (1)
  1. AMPHETAMINE W/DEXTROAMPHETAMINE [Suspect]
     Active Substance: AMPHETAMINE SULFATE\DEXTROAMPHETAMINE
     Indication: DISTURBANCE IN ATTENTION
     Dates: start: 20170629

REACTIONS (4)
  - Fatigue [Unknown]
  - Irritability [Unknown]
  - Feeling jittery [Unknown]
  - Tension [Unknown]

NARRATIVE: CASE EVENT DATE: 20170629
